FAERS Safety Report 21889863 (Version 1)
Quarter: 2023Q1

REPORT INFORMATION
  Report Type: Spontaneous
  Country: US (occurrence: US)
  Receive Date: 20230120
  Receipt Date: 20230120
  Transmission Date: 20230417
  Serious: Yes (Other)
  Sender: FDA-Public Use
  Company Number: US-BRISTOL-MYERS SQUIBB COMPANY-2023-007108

PATIENT
  Age: 62 Year
  Sex: Male

DRUGS (2)
  1. ONUREG [Suspect]
     Active Substance: AZACITIDINE
     Indication: Acute myeloid leukaemia
     Dosage: DOSE: 300MG; FREQ: DAILY X 14 DAYS OF A 28-DAY CYCLE.
     Route: 048
     Dates: start: 20220623
  2. ONUREG [Suspect]
     Active Substance: AZACITIDINE
     Dosage: DOSE: 300MG; FREQ: DAILY X 14 DAYS OF A 28-DAY CYCLE.
     Route: 048

REACTIONS (1)
  - Neutropenia [Unknown]
